FAERS Safety Report 22526794 (Version 1)
Quarter: 2023Q2

REPORT INFORMATION
  Report Type: Report from Study
  Country: CH (occurrence: CH)
  Receive Date: 20230606
  Receipt Date: 20230606
  Transmission Date: 20230721
  Serious: Yes (Other)
  Sender: FDA-Public Use
  Company Number: CH-ASTELLAS-2023US016743

PATIENT
  Sex: Male

DRUGS (2)
  1. ENFORTUMAB VEDOTIN [Suspect]
     Active Substance: ENFORTUMAB VEDOTIN
     Indication: Transitional cell carcinoma
     Dosage: 1 MG/KG, CYCLIC (DOSING FREQUENCY DAY 1, 8, 15)
     Route: 042
  2. ENFORTUMAB VEDOTIN [Suspect]
     Active Substance: ENFORTUMAB VEDOTIN
     Dosage: 1 MG/KG, CYCLIC (DAY 1, 8 AND ON WEEK PAUSE)
     Route: 042

REACTIONS (4)
  - Malignant neoplasm progression [Unknown]
  - Haematotoxicity [Unknown]
  - Prescribed underdose [Unknown]
  - Off label use [Unknown]
